FAERS Safety Report 5925795-7 (Version None)
Quarter: 2008Q4

REPORT INFORMATION
  Report Type: 
  Country: None (occurrence: None)
  Receive Date: 20081021
  Receipt Date: 20081010
  Transmission Date: 20090506
  Serious: Yes (Disabling)
  Sender: FDA-Public Use
  Company Number: JP-SANOFI-SYNTHELABO-A01200804688

PATIENT
  Sex: Male
  Weight: 44 kg

DRUGS (7)
  1. BARACLUDE [Concomitant]
     Indication: HEPATITIS B
     Route: 048
  2. LASIX [Concomitant]
     Route: 048
  3. LANSOPRAZOLE [Concomitant]
     Route: 048
  4. MAGMITT [Concomitant]
     Route: 048
  5. ISOVORIN [Concomitant]
     Route: 041
     Dates: start: 20080414, end: 20080414
  6. ELPLAT [Suspect]
     Indication: LARGE INTESTINE CARCINOMA
     Route: 041
     Dates: start: 20080414, end: 20080414
  7. FLUOROURACIL [Suspect]
     Dosage: 3000MG/BODY=2127.7MG/M2 AS CONTINUOUS INFUSION ON DAY 1-2
     Route: 041
     Dates: start: 20080414, end: 20080414

REACTIONS (4)
  - COGNITIVE DISORDER [None]
  - DELUSION [None]
  - EXPRESSIVE LANGUAGE DISORDER [None]
  - HALLUCINATION [None]
